FAERS Safety Report 6049536-0 (Version None)
Quarter: 2009Q1

REPORT INFORMATION
  Report Type: 
  Country: None (occurrence: None)
  Receive Date: 20090121
  Receipt Date: 20090107
  Transmission Date: 20090719
  Serious: No
  Sender: FDA-Public Use
  Company Number: 004699

PATIENT
  Age: 82 Year
  Sex: Male
  Weight: 68.5 kg

DRUGS (13)
  1. PLETAL [Suspect]
     Indication: ARTERIOSCLEROSIS OBLITERANS
     Dosage: 50 MG, BID; ORAL
     Route: 048
     Dates: start: 20080201, end: 20080624
  2. ANTIDIABETIC AGENTS (ANTIDIABETIC AGENTS) [Concomitant]
  3. INSULIN (INSULIN) INJECTION [Concomitant]
  4. SYNTHETIC ANTIBACTERIALS (SYNTHETIC ANTIBACTERIALS) [Concomitant]
  5. ALLOPURINOL [Concomitant]
  6. LASIX [Concomitant]
  7. ASPARA K (POTASIUM L-ASPARTATE) [Concomitant]
  8. GASTER D (FAMOTIDINE) TABLET [Concomitant]
  9. PRIMPERAN TAB [Concomitant]
  10. ADALAT-CR (NIFEDIPINE) TABLET [Concomitant]
  11. DIOVAN [Concomitant]
  12. ALSOSENN (SENNA LEAF SENNA POD) [Concomitant]
  13. BASEN OD (VOGLIBOSE) TABLET [Concomitant]

REACTIONS (11)
  - ANAEMIA [None]
  - COLD SWEAT [None]
  - CONTUSION [None]
  - DISEASE PROGRESSION [None]
  - EXCORIATION [None]
  - FALL [None]
  - GLYCOSYLATED HAEMOGLOBIN INCREASED [None]
  - HAEMORRHAGE SUBCUTANEOUS [None]
  - HYPOGLYCAEMIA [None]
  - MUSCLE HAEMORRHAGE [None]
  - URINARY TRACT INFECTION [None]
